FAERS Safety Report 4273671-0 (Version None)
Quarter: 2004Q1

REPORT INFORMATION
  Report Type: 
  Country: None (occurrence: None)
  Receive Date: 20040114
  Receipt Date: 20040108
  Transmission Date: 20041129
  Serious: Yes (Death, Hospitalization)
  Sender: FDA-Public Use
  Company Number: S03-SWE-02737-01

PATIENT
  Age: 76 Year
  Sex: Female

DRUGS (5)
  1. CIPRAMIL (CITALOPRAM HYDROBROMIDE) [Suspect]
     Dosage: 10 MG QD PO
     Route: 048
  2. WARFARIN SODIUM [Suspect]
     Indication: ATRIAL FIBRILLATION
     Dosage: 2.5 MG QD PO
     Route: 048
     Dates: start: 20020301, end: 20030309
  3. ZOCOR [Concomitant]
  4. MIANSERIN ^NM PHARMA (MIANSERIN HYDROCHLORIDE) [Concomitant]
  5. SOTALOL ^RATIOPHARM^ (SOTALOL) [Concomitant]

REACTIONS (15)
  - ATRIAL FIBRILLATION [None]
  - BALANCE DISORDER [None]
  - BEDRIDDEN [None]
  - DEPRESSED LEVEL OF CONSCIOUSNESS [None]
  - FALL [None]
  - FATIGUE [None]
  - GENERAL PHYSICAL HEALTH DETERIORATION [None]
  - HEADACHE [None]
  - IMMOBILE [None]
  - LOSS OF CONSCIOUSNESS [None]
  - MYDRIASIS [None]
  - PARESIS [None]
  - PNEUMONIA [None]
  - PYREXIA [None]
  - SUBDURAL HAEMORRHAGE [None]
